FAERS Safety Report 7997682-4 (Version None)
Quarter: 2011Q4

REPORT INFORMATION
  Report Type: 
  Country: None (occurrence: None)
  Receive Date: 20111221
  Receipt Date: 20111216
  Transmission Date: 20120403
  Serious: Yes (Death, Hospitalization)
  Sender: FDA-Public Use
  Company Number: FR-PFIZER INC-2011306487

PATIENT
  Age: 59 Year
  Sex: Male
  Weight: 67 kg

DRUGS (3)
  1. EPLERENONE [Suspect]
     Indication: ACUTE MYOCARDIAL INFARCTION
     Dosage: 25 MG A DAY
     Dates: start: 20080922
  2. ALLOPURINOL [Concomitant]
     Dosage: UNK
     Dates: start: 20081119
  3. PREVISCAN [Concomitant]
     Dosage: UNK
     Dates: start: 20070511

REACTIONS (3)
  - EJECTION FRACTION DECREASED [None]
  - CARDIAC FAILURE [None]
  - ACUTE PULMONARY OEDEMA [None]
